FAERS Safety Report 8058611-0 (Version None)
Quarter: 2012Q1

REPORT INFORMATION
  Report Type: 
  Country: None (occurrence: None)
  Receive Date: 20120120
  Receipt Date: 20120113
  Transmission Date: 20120608
  Serious: Yes (Hospitalization)
  Sender: FDA-Public Use
  Company Number: FR-BRISTOL-MYERS SQUIBB COMPANY-16288284

PATIENT
  Age: 59 Year
  Sex: Male
  Weight: 78 kg

DRUGS (6)
  1. ACETAMINOPHEN AND CODEINE PHOSPHATE [Concomitant]
     Indication: NECK PAIN
     Route: 048
     Dates: start: 20111101
  2. XANAX [Concomitant]
     Indication: DEPRESSION
     Route: 048
     Dates: start: 20110701
  3. ATHYMIL [Concomitant]
     Indication: DEPRESSION
     Route: 048
     Dates: start: 20110701
  4. ATARAX [Concomitant]
     Indication: DEPRESSION
     Route: 048
     Dates: start: 20110701
  5. PREDNISONE TAB [Concomitant]
     Indication: PANCREATITIS
     Route: 048
     Dates: start: 20111116
  6. IPILIMUMAB [Suspect]
     Indication: MALIGNANT MELANOMA
     Dosage: 4TH INF: 5DEC11
     Dates: start: 20110930

REACTIONS (3)
  - SEPSIS [None]
  - LIPASE INCREASED [None]
  - DIARRHOEA HAEMORRHAGIC [None]
